FAERS Safety Report 6027276-1 (Version None)
Quarter: 2009Q1

REPORT INFORMATION
  Report Type: 
  Country: None (occurrence: None)
  Receive Date: 20090102
  Receipt Date: 20090102
  Transmission Date: 20090719
  Serious: Yes (Life-Threatening, Disabling)
  Sender: FDA-Public Use
  Company Number: None

PATIENT
  Age: 53 Year
  Sex: Female

DRUGS (1)
  1. VENTOLIN [Suspect]
     Dosage: 1 ACTUATION 1X INHAL
     Route: 055
     Dates: start: 20081231, end: 20081231

REACTIONS (2)
  - BRONCHOSPASM [None]
  - PRODUCT QUALITY ISSUE [None]
